FAERS Safety Report 7536360-2 (Version None)
Quarter: 2011Q2

REPORT INFORMATION
  Report Type: 
  Country: None (occurrence: None)
  Receive Date: 20110602
  Receipt Date: 20110520
  Transmission Date: 20111010
  Serious: Yes (Hospitalization)
  Sender: FDA-Public Use
  Company Number: 7051322

PATIENT
  Age: 27 Year
  Sex: Female

DRUGS (1)
  1. LEVOTHYROXINE SODIUM [Suspect]
     Indication: CONGENITAL HYPOTHYROIDISM
     Dosage: 125 MCG, ORAL
     Route: 048
     Dates: start: 20030101

REACTIONS (6)
  - LOSS OF CONTROL OF LEGS [None]
  - SENSORY LOSS [None]
  - MALAISE [None]
  - OVERDOSE [None]
  - HYPERTHYROIDISM [None]
  - PERIPHERAL NERVE LESION [None]
